FAERS Safety Report 10174547 (Version 2)
Quarter: 2014Q2

REPORT INFORMATION
  Report Type: Spontaneous
  Country: GB (occurrence: GB)
  Receive Date: 20140515
  Receipt Date: 20140519
  Transmission Date: 20141212
  Serious: Yes (Other)
  Sender: FDA-Public Use
  Company Number: GB-PFIZER INC-2014129024

PATIENT
  Age: 71 Year
  Sex: Female

DRUGS (5)
  1. DOXORUBICIN [Suspect]
     Dosage: ONE CYCLE.
     Route: 042
  2. CYCLOPHOSPHAMIDE [Suspect]
     Dosage: ONE CYCLE.
     Route: 042
  3. MABTHERA [Suspect]
     Indication: DIFFUSE LARGE B-CELL LYMPHOMA
     Dosage: 375 MG/M2, UNK
     Route: 065
     Dates: start: 20130913, end: 20140315
  4. PREDNISONE [Suspect]
     Dosage: ONE CYCLE.
     Route: 048
  5. VINCRISTINE [Suspect]
     Dosage: ONE CYCLE.
     Route: 042

REACTIONS (1)
  - Progressive multifocal leukoencephalopathy [Recovering/Resolving]
